FAERS Safety Report 18014770 (Version 3)
Quarter: 2020Q4

REPORT INFORMATION
  Report Type: Spontaneous
  Country: IT (occurrence: IT)
  Receive Date: 20200713
  Receipt Date: 20201013
  Transmission Date: 20210113
  Serious: Yes (Death)
  Sender: FDA-Public Use
  Company Number: IT-TEVA-2020-IT-1798696

PATIENT
  Age: 79 Year
  Sex: Female

DRUGS (3)
  1. ENDOXAN BAXTER [Suspect]
     Active Substance: CYCLOPHOSPHAMIDE
     Indication: NON-HODGKIN^S LYMPHOMA STAGE IV
     Dosage: 1080 MG
     Route: 042
     Dates: start: 20200617, end: 20200617
  2. MYOCET 50 MG POWDER, DISPERSION AND SOLVENT FOR CONCENTRATE FOR DISPER [Suspect]
     Active Substance: DOXORUBICIN
     Indication: NON-HODGKIN^S LYMPHOMA STAGE IV
     Dosage: 72 MG
     Route: 042
     Dates: start: 20200617, end: 20200617
  3. VINCRISTINA TEVA [Suspect]
     Active Substance: VINCRISTINE
     Indication: NON-HODGKIN^S LYMPHOMA STAGE IV
     Dosage: 2 MG
     Route: 040
     Dates: start: 20200617, end: 20200617

REACTIONS (9)
  - Sinus tachycardia [Fatal]
  - Anaemia [Fatal]
  - Anuria [Fatal]
  - Leukopenia [Fatal]
  - Cardiac failure [Fatal]
  - Tremor [Fatal]
  - Dyspnoea [Fatal]
  - Thrombocytopenia [Fatal]
  - Pleural effusion [Fatal]

NARRATIVE: CASE EVENT DATE: 20200620
